FAERS Safety Report 25141013 (Version 2)
Quarter: 2025Q2

REPORT INFORMATION
  Report Type: Other
  Country: CA (occurrence: CA)
  Receive Date: 20250331
  Receipt Date: 20250401
  Transmission Date: 20250717
  Serious: No
  Sender: TOLMAR
  Company Number: CA-20250312-7df9fa

PATIENT
  Sex: Male

DRUGS (2)
  1. ELIGARD [Suspect]
     Active Substance: LEUPROLIDE ACETATE
     Indication: Prostate cancer
     Dosage: 45 MG, EVERY 6 MONTHS
     Route: 058
     Dates: start: 20190827
  2. ELIGARD [Suspect]
     Active Substance: LEUPROLIDE ACETATE
     Dosage: 45 MG, EVERY 6 MONTHS
     Route: 058
     Dates: start: 20250312

REACTIONS (3)
  - Breast mass [Not Recovered/Not Resolved]
  - Fatigue [Unknown]
  - Hot flush [Unknown]
